FAERS Safety Report 9912423 (Version 1)
Quarter: 2014Q1

REPORT INFORMATION
  Report Type: Report from Study
  Country: US (occurrence: US)
  Receive Date: 20140220
  Receipt Date: 20140220
  Transmission Date: 20141002
  Serious: Yes (Death)
  Sender: FDA-Public Use
  Company Number: US-ROCHE-1352873

PATIENT
  Sex: Female
  Weight: 227 kg

DRUGS (1)
  1. RITUXAN [Suspect]
     Indication: GRANULOMATOSIS WITH POLYANGIITIS
     Route: 042

REACTIONS (1)
  - Death [Fatal]
